APPROVED DRUG PRODUCT: METHYLPHENIDATE HYDROCHLORIDE
Active Ingredient: METHYLPHENIDATE HYDROCHLORIDE
Strength: 10MG/5ML
Dosage Form/Route: SOLUTION;ORAL
Application: A207414 | Product #002
Applicant: CHARTWELL MOLECULAR HOLDINGS LLC
Approved: Dec 16, 2020 | RLD: No | RS: No | Type: DISCN